FAERS Safety Report 6267150-9 (Version None)
Quarter: 2009Q3

REPORT INFORMATION
  Report Type: 
  Country: None (occurrence: None)
  Receive Date: 20090710
  Receipt Date: 20090626
  Transmission Date: 20100115
  Serious: Yes (Death)
  Sender: FDA-Public Use
  Company Number: 1000007277

PATIENT
  Age: 48 Year
  Sex: Male

DRUGS (3)
  1. CELEXA [Suspect]
     Dosage: 20 MG (20 MG, 1 IN 1 D), ORAL, 40 MG (40 MG, 1 IN 1 D), ORAL
     Route: 048
  2. WELLBUTRIN XL [Suspect]
     Dosage: 300 MG (300 MG, 1 IN 1 D), ORAL, 450 MG (450 MG, 1 IN 1 D), ORAL
     Route: 048
  3. ZOPICLONE [Concomitant]

REACTIONS (2)
  - COMPLETED SUICIDE [None]
  - SUICIDAL IDEATION [None]
